FAERS Safety Report 15234477 (Version 1)
Quarter: 2018Q3

REPORT INFORMATION
  Report Type: Spontaneous
  Country: IT (occurrence: IT)
  Receive Date: 20180803
  Receipt Date: 20180803
  Transmission Date: 20181010
  Serious: No
  Sender: FDA-Public Use
  Company Number: IT-ALKEM LABORATORIES LIMITED-IT-ALKEM-2018-04847

PATIENT
  Sex: Male

DRUGS (1)
  1. FINASTERIDE. [Suspect]
     Active Substance: FINASTERIDE
     Indication: ANDROGENETIC ALOPECIA
     Dosage: UNK
     Route: 065

REACTIONS (10)
  - Hypotonia [Unknown]
  - Testicular retraction [Unknown]
  - Hair growth abnormal [Unknown]
  - Penile pain [Unknown]
  - Testicular pain [Unknown]
  - Penis disorder [Unknown]
  - Testicular disorder [Unknown]
  - Penile size reduced [Unknown]
  - Ejaculation failure [Unknown]
  - Erectile dysfunction [Unknown]
